FAERS Safety Report 14962386 (Version 2)
Quarter: 2018Q2

REPORT INFORMATION
  Report Type: Report from Study
  Country: CH (occurrence: CH)
  Receive Date: 20180601
  Receipt Date: 20180605
  Transmission Date: 20180711
  Serious: Yes (Other)
  Sender: FDA-Public Use
  Company Number: CH-ASTRAZENECA-2018SE69686

PATIENT
  Age: 22861 Day
  Sex: Male
  Weight: 81 kg

DRUGS (1)
  1. DURVALUMAB. [Suspect]
     Active Substance: DURVALUMAB
     Indication: NON-SMALL CELL LUNG CANCER STAGE III
     Route: 042
     Dates: start: 201711

REACTIONS (2)
  - Rash maculo-papular [Recovering/Resolving]
  - Toxic skin eruption [Unknown]

NARRATIVE: CASE EVENT DATE: 20180309
